FAERS Safety Report 15251155 (Version 1)
Quarter: 2018Q3

REPORT INFORMATION
  Report Type: Report from Study
  Country: US (occurrence: US)
  Receive Date: 20180807
  Receipt Date: 20180807
  Transmission Date: 20181010
  Serious: Yes (Other)
  Sender: FDA-Public Use
  Company Number: US-SA-2018SA203888

PATIENT
  Age: 52 Year
  Sex: Male

DRUGS (1)
  1. ALEMTUZUMAB [Suspect]
     Active Substance: ALEMTUZUMAB
     Indication: MULTIPLE SCLEROSIS
     Dosage: 12 MG, QD
     Route: 041
     Dates: start: 20180716, end: 20180720

REACTIONS (12)
  - Musculoskeletal discomfort [Unknown]
  - Anxiety [Unknown]
  - Pain in jaw [Unknown]
  - Dizziness [Unknown]
  - Headache [Recovered/Resolved]
  - Blood pressure increased [Unknown]
  - Hypogeusia [Not Recovered/Not Resolved]
  - Urticaria [Not Recovered/Not Resolved]
  - Dyspepsia [Unknown]
  - Atrial fibrillation [Recovered/Resolved]
  - Palpitations [Unknown]
  - Heart rate increased [Unknown]

NARRATIVE: CASE EVENT DATE: 201807
